FAERS Safety Report 9586253 (Version 1)
Quarter: 2013Q4

REPORT INFORMATION
  Report Type: Spontaneous
  Country: FR (occurrence: FR)
  Receive Date: 20131003
  Receipt Date: 20131003
  Transmission Date: 20140711
  Serious: Yes (Death, Hospitalization)
  Sender: FDA-Public Use
  Company Number: FR-ASTRAZENECA-2013SE72869

PATIENT
  Age: 53 Year
  Sex: Female

DRUGS (9)
  1. INEXIUM [Suspect]
     Route: 048
  2. NEORAL [Suspect]
     Route: 048
     Dates: start: 20130426
  3. CORTANCYL [Suspect]
     Route: 048
     Dates: start: 20130426
  4. CORTANCYL [Suspect]
     Route: 048
  5. CELLCEPT [Concomitant]
     Dates: end: 20130603
  6. AVLOCARDYL [Concomitant]
  7. LEVEMIR [Concomitant]
     Dates: end: 20130522
  8. AMBISOME [Concomitant]
     Dates: end: 20130522
  9. ANCOTIL [Concomitant]
     Dates: end: 20130522

REACTIONS (2)
  - Diarrhoea [Fatal]
  - Shock [Fatal]
